FAERS Safety Report 9405168 (Version 1)
Quarter: 2013Q3

REPORT INFORMATION
  Report Type: Spontaneous
  Country: IN (occurrence: IN)
  Receive Date: 20130717
  Receipt Date: 20130717
  Transmission Date: 20140515
  Serious: Yes (Death)
  Sender: FDA-Public Use
  Company Number: IN-B.I. PHARMACEUTICALS,INC./RIDGEFIELD-2013-BI-20541IG

PATIENT
  Sex: Female

DRUGS (5)
  1. PRADAXA [Suspect]
     Indication: CEREBROVASCULAR ACCIDENT PROPHYLAXIS
     Dosage: 220 MG
  2. PRADAXA [Suspect]
     Indication: ATRIAL FIBRILLATION
  3. ANTIHYPERTENSIVE [Concomitant]
     Indication: HYPERTENSION
  4. ASPIRIN [Concomitant]
  5. CLOPIDOGREL [Concomitant]

REACTIONS (1)
  - Haemorrhage intracranial [Fatal]
